FAERS Safety Report 24108944 (Version 1)
Quarter: 2024Q3

REPORT INFORMATION
  Report Type: Spontaneous
  Country: MX (occurrence: MX)
  Receive Date: 20240718
  Receipt Date: 20240718
  Transmission Date: 20241017
  Serious: Yes (Other)
  Sender: AMGEN
  Company Number: MX-AMGEN-MEXSP2024137295

PATIENT
  Age: 43 Year
  Sex: Female

DRUGS (3)
  1. PEGFILGRASTIM [Suspect]
     Active Substance: PEGFILGRASTIM
     Indication: Prophylaxis
     Dosage: UNK
     Route: 065
  2. ADRIAMYCIN [Concomitant]
     Active Substance: DOXORUBICIN HYDROCHLORIDE
     Indication: HER2 negative breast cancer
     Dosage: UNK, DENSE DOSE
  3. CYCLOPHOSPHAMIDE [Concomitant]
     Active Substance: CYCLOPHOSPHAMIDE
     Indication: HER2 negative breast cancer
     Dosage: UNK, DENSE DOSE

REACTIONS (2)
  - Neutropenia [Unknown]
  - Therapy non-responder [Unknown]
